FAERS Safety Report 10375211 (Version 1)
Quarter: 2014Q3

REPORT INFORMATION
  Report Type: Spontaneous
  Country: US (occurrence: None)
  Receive Date: 20140808
  Receipt Date: 20140808
  Transmission Date: 20150326
  Serious: Yes (Other)
  Sender: FDA-Public Use
  Company Number: None

PATIENT
  Age: 51 Year
  Sex: Female
  Weight: 115.67 kg

DRUGS (1)
  1. LAMICTAL [Suspect]
     Active Substance: LAMOTRIGINE
     Indication: AFFECTIVE DISORDER
     Dosage: 2 PILLS
     Route: 048
     Dates: start: 20070325, end: 20140125

REACTIONS (5)
  - Libido increased [None]
  - Genital discomfort [None]
  - Genital swelling [None]
  - Product substitution issue [None]
  - Nerve injury [None]

NARRATIVE: CASE EVENT DATE: 20140807
